FAERS Safety Report 4334944-6 (Version None)
Quarter: 2004Q2

REPORT INFORMATION
  Report Type: 
  Country: None (occurrence: None)
  Receive Date: 20040408
  Receipt Date: 20040116
  Transmission Date: 20050107
  Serious: Yes (Hospitalization, Other)
  Sender: FDA-Public Use
  Company Number: PHNU2004DE00601

PATIENT
  Age: 74 Year
  Sex: Female

DRUGS (4)
  1. SANDIMMUNE [Suspect]
     Indication: SKIN GRAFT
     Route: 048
     Dates: start: 20031201
  2. SANDIMMUNE [Suspect]
     Indication: SKIN GRAFT
     Dosage: 25 MG, BID
     Route: 048
  3. CORTISONE [Concomitant]
  4. MORPHINE [Concomitant]

REACTIONS (7)
  - ASTHENIA [None]
  - CONFUSIONAL STATE [None]
  - DRUG LEVEL INCREASED [None]
  - ENCEPHALOPATHY [None]
  - FATIGUE [None]
  - GAIT DISTURBANCE [None]
  - PSYCHOTIC DISORDER [None]
